FAERS Safety Report 16204497 (Version 1)
Quarter: 2019Q2

REPORT INFORMATION
  Report Type: Spontaneous
  Country: FI (occurrence: FI)
  Receive Date: 20190416
  Receipt Date: 20190416
  Transmission Date: 20190711
  Serious: Yes (Disabling, Other)
  Sender: FDA-Public Use
  Company Number: FI-SHIRE-FI201912145

PATIENT

DRUGS (4)
  1. VOXRA [Concomitant]
     Active Substance: BUPROPION HYDROCHLORIDE
     Indication: DEPRESSION
     Dosage: 300,MG,DAILY
     Dates: start: 2012
  2. ELVANSE [Suspect]
     Active Substance: LISDEXAMFETAMINE DIMESYLATE
     Indication: ATTENTION DEFICIT/HYPERACTIVITY DISORDER
     Dosage: 50 MILLIGRAM, 1X/DAY:QD
     Route: 048
     Dates: start: 2015, end: 2018
  3. LEVOFLOXACINE [Concomitant]
     Active Substance: LEVOFLOXACIN
     Indication: UROSEPSIS
     Route: 048
     Dates: start: 201509, end: 201509
  4. ZINACEF [Concomitant]
     Active Substance: CEFUROXIME SODIUM
     Indication: UROSEPSIS
     Dosage: 4.5,G,DAILY
     Route: 042
     Dates: start: 201509, end: 201509

REACTIONS (1)
  - Cerebral infarction [Recovered/Resolved with Sequelae]
